FAERS Safety Report 10726548 (Version 1)
Quarter: 2015Q1

REPORT INFORMATION
  Report Type: Spontaneous
  Country: US (occurrence: None)
  Receive Date: 20150120
  Receipt Date: 20150120
  Transmission Date: 20150721
  Serious: No
  Sender: FDA-Public Use
  Company Number: None

PATIENT
  Age: 13 Year
  Sex: Male

DRUGS (1)
  1. OMNITROPE [Suspect]
     Active Substance: SOMATROPIN
     Indication: DWARFISM
     Dosage: INJECT 1.6MG, DAILY-6 TIMES/WEEK
     Route: 058

REACTIONS (4)
  - Product odour abnormal [None]
  - Post procedural complication [None]
  - Product quality issue [None]
  - Burning sensation [None]

NARRATIVE: CASE EVENT DATE: 20150114
